FAERS Safety Report 5936751-7 (Version None)
Quarter: 2008Q4

REPORT INFORMATION
  Report Type: 
  Country: None (occurrence: None)
  Receive Date: 20081023
  Receipt Date: 20081014
  Transmission Date: 20090506
  Serious: Yes (Hospitalization)
  Sender: FDA-Public Use
  Company Number: 200814003

PATIENT
  Age: 46 Year
  Sex: Female
  Weight: 69.4003 kg

DRUGS (14)
  1. VIVAGLOBIN [Suspect]
     Indication: BLOOD IMMUNOGLOBULIN G DECREASED
     Dosage: 31.25 ML Q1W SC
     Route: 058
     Dates: start: 20080801, end: 20080801
  2. VIVAGLOBIN [Suspect]
  3. VIVAGLOBIN [Suspect]
  4. . [Concomitant]
  5. ETHINYL ESTRADIOL W/NORGESTREL [Concomitant]
  6. DESYREL [Concomitant]
  7. ATIVAN [Concomitant]
  8. MOTRIN [Concomitant]
  9. LYRICA [Concomitant]
  10. ADVAIR DISKUS 100/50 [Concomitant]
  11. FOSAMAX [Concomitant]
  12. CALCIUM [Concomitant]
  13. ULTRAM [Concomitant]
  14. NAPROXEN [Concomitant]

REACTIONS (6)
  - CONTUSION [None]
  - SKIN EXFOLIATION [None]
  - SUBCUTANEOUS ABSCESS [None]
  - SWELLING [None]
  - URTICARIA [None]
  - VASCULITIS [None]
